FAERS Safety Report 21400399 (Version 1)
Quarter: 2022Q4

REPORT INFORMATION
  Report Type: Spontaneous
  Country: JP (occurrence: JP)
  Receive Date: 20221002
  Receipt Date: 20221002
  Transmission Date: 20230113
  Serious: Yes (Hospitalization, Other)
  Sender: FDA-Public Use
  Company Number: JP-OTSUKA-2020_023245

PATIENT
  Age: 1 Year
  Sex: Female

DRUGS (6)
  1. CARTEOLOL HYDROCHLORIDE [Suspect]
     Active Substance: CARTEOLOL HYDROCHLORIDE
     Indication: Glaucoma
     Route: 047
     Dates: start: 201902, end: 201911
  2. CARTEOLOL HYDROCHLORIDE [Suspect]
     Active Substance: CARTEOLOL HYDROCHLORIDE
     Indication: Ocular hypertension
     Route: 047
     Dates: start: 20190828, end: 20191127
  3. CARTEOLOL HYDROCHLORIDE\LATANOPROST [Suspect]
     Active Substance: CARTEOLOL HYDROCHLORIDE\LATANOPROST
     Indication: Ocular hypertension
     Route: 065
  4. VINBLASTINE SULFATE [Concomitant]
     Active Substance: VINBLASTINE SULFATE
     Indication: Langerhans^ cell histiocytosis
     Route: 042
  5. PREDNISOLONE [Concomitant]
     Active Substance: PREDNISOLONE
     Indication: Langerhans^ cell histiocytosis
     Route: 048
  6. MERCAPTOPURINE [Concomitant]
     Active Substance: MERCAPTOPURINE
     Indication: Langerhans^ cell histiocytosis
     Dosage: TAKING DAILY
     Route: 065

REACTIONS (5)
  - Altered state of consciousness [Recovered/Resolved]
  - Seizure [Recovered/Resolved]
  - Hypoglycaemia [Recovered/Resolved]
  - Gastroenteritis [Recovering/Resolving]
  - Product use issue [Unknown]

NARRATIVE: CASE EVENT DATE: 20191127
